FAERS Safety Report 9483763 (Version 1)
Quarter: 2013Q3

REPORT INFORMATION
  Report Type: Spontaneous
  Country: CA (occurrence: CA)
  Receive Date: 20130828
  Receipt Date: 20130828
  Transmission Date: 20140515
  Serious: Yes (Hospitalization, Disabling)
  Sender: FDA-Public Use
  Company Number: CA-AMGEN-KDL330648

PATIENT
  Age: 79 Year
  Sex: Female

DRUGS (1)
  1. ENBREL [Suspect]
     Indication: RHEUMATOID ARTHRITIS
     Dosage: UNK UNK, QWK
     Route: 065
     Dates: start: 20030915

REACTIONS (6)
  - Myocardial infarction [Not Recovered/Not Resolved]
  - Vascular graft [Unknown]
  - Pericardial effusion [Unknown]
  - Chest pain [Unknown]
  - Dyspnoea [Unknown]
  - Haemoglobin decreased [Unknown]
